FAERS Safety Report 8301560-0 (Version None)
Quarter: 2012Q2

REPORT INFORMATION
  Report Type: 
  Country: None (occurrence: None)
  Receive Date: 20120420
  Receipt Date: 20120405
  Transmission Date: 20120825
  Serious: Yes (Hospitalization, Other)
  Sender: FDA-Public Use
  Company Number: CA-ROCHE-1024372

PATIENT
  Sex: Male
  Weight: 93.07 kg

DRUGS (2)
  1. ACTEMRA [Suspect]
     Route: 042
     Dates: start: 20111020, end: 20120316
  2. ACTEMRA [Suspect]
     Indication: RHEUMATOID ARTHRITIS
     Route: 042
     Dates: start: 20110602, end: 20120316

REACTIONS (4)
  - PAIN IN EXTREMITY [None]
  - VASCULITIS [None]
  - PANCREATITIS [None]
  - SKIN DISCOLOURATION [None]
